FAERS Safety Report 21271705 (Version 2)
Quarter: 2023Q1

REPORT INFORMATION
  Report Type: Spontaneous
  Country: US (occurrence: US)
  Receive Date: 20220830
  Receipt Date: 20230110
  Transmission Date: 20230418
  Serious: No
  Sender: FDA-Public Use
  Company Number: US-BRISTOL-MYERS SQUIBB COMPANY-2022-097830

PATIENT
  Age: 84 Year
  Sex: Male

DRUGS (1)
  1. ONUREG [Suspect]
     Active Substance: AZACITIDINE
     Indication: Product used for unknown indication
     Dosage: FREQ :ONE TABLET FOR 14 DAYS OUT OF 28 DAYS
     Route: 048

REACTIONS (2)
  - White blood cell count decreased [Unknown]
  - Blood test abnormal [Unknown]
